FAERS Safety Report 5519561-4 (Version None)
Quarter: 2007Q4

REPORT INFORMATION
  Report Type: 
  Country: None (occurrence: None)
  Receive Date: 20071116
  Receipt Date: 20071114
  Transmission Date: 20080405
  Serious: Yes (Hospitalization)
  Sender: FDA-Public Use
  Company Number: B0495813A

PATIENT
  Age: 81 Year
  Sex: Male

DRUGS (1)
  1. AUGMENTIN '125' [Suspect]
     Indication: INFECTED SKIN ULCER
     Route: 048
     Dates: start: 20070912, end: 20070913

REACTIONS (4)
  - DYSPNOEA [None]
  - MALAISE [None]
  - RASH [None]
  - TACHYCARDIA [None]
